FAERS Safety Report 17522091 (Version 1)
Quarter: 2020Q1

REPORT INFORMATION
  Report Type: Report from Study
  Country: GB (occurrence: GB)
  Receive Date: 20200310
  Receipt Date: 20200310
  Transmission Date: 20200409
  Serious: Yes (Other)
  Sender: FDA-Public Use
  Company Number: GB-MYLANLABS-2020M1025057

PATIENT
  Sex: Male

DRUGS (2)
  1. CANDESARTAN. [Suspect]
     Active Substance: CANDESARTAN
     Dosage: 24
     Route: 048
  2. CANDESARTAN. [Suspect]
     Active Substance: CANDESARTAN
     Indication: CARDIAC FAILURE
     Dosage: 4 MILLIGRAM
     Route: 048

REACTIONS (4)
  - Blood pressure decreased [Unknown]
  - Blood pressure abnormal [Unknown]
  - Renal failure [Unknown]
  - Renal disorder [Unknown]
